FAERS Safety Report 18823752 (Version 1)
Quarter: 2021Q1

REPORT INFORMATION
  Report Type: Spontaneous
  Country: US (occurrence: US)
  Receive Date: 20210202
  Receipt Date: 20210202
  Transmission Date: 20210419
  Serious: No
  Sender: FDA-Public Use
  Company Number: US-NEOS THERAPEUTICS, LP-2020NEO00031

PATIENT
  Sex: Male
  Weight: 34.01 kg

DRUGS (3)
  1. ADZENYS XR?ODT [Suspect]
     Active Substance: AMPHETAMINE
     Dosage: 9.6 MG, 1X/DAY (1 AND 1/2 TABLETS)
     Route: 048
  2. FLUOXETINE [Concomitant]
     Active Substance: FLUOXETINE HYDROCHLORIDE
  3. ADZENYS XR?ODT [Suspect]
     Active Substance: AMPHETAMINE
     Indication: ATTENTION DEFICIT HYPERACTIVITY DISORDER
     Dosage: 6.3 MG, 1X/DAY
     Route: 048
     Dates: start: 201910

REACTIONS (3)
  - Apnoea [Not Recovered/Not Resolved]
  - Impulse-control disorder [Not Recovered/Not Resolved]
  - Drug tolerance [Not Recovered/Not Resolved]
